FAERS Safety Report 7242987-8 (Version None)
Quarter: 2011Q1

REPORT INFORMATION
  Report Type: 
  Country: None (occurrence: None)
  Receive Date: 20110125
  Receipt Date: 20110120
  Transmission Date: 20110831
  Serious: Yes (Hospitalization)
  Sender: FDA-Public Use
  Company Number: KR-PFIZER INC-2010157222

PATIENT
  Age: 57 Year
  Sex: Female
  Weight: 56 kg

DRUGS (2)
  1. SUTENE [Suspect]
     Indication: BILE DUCT CANCER
     Dosage: 25 MG, 1X/DAY
     Dates: start: 20100430, end: 20101102
  2. OXYCODONE HYDROCHLORIDE [Concomitant]
     Indication: PAIN
     Dosage: 10 MG, UNK
     Route: 048
     Dates: start: 20101026

REACTIONS (1)
  - GASTRITIS EROSIVE [None]
